FAERS Safety Report 22537447 (Version 2)
Quarter: 2024Q2

REPORT INFORMATION
  Report Type: Spontaneous
  Country: US (occurrence: US)
  Receive Date: 20230608
  Receipt Date: 20240614
  Transmission Date: 20240715
  Serious: Yes (Other)
  Sender: FDA-Public Use
  Company Number: US-UCBSA-2023028717

PATIENT
  Age: 66 Year
  Sex: Male

DRUGS (2)
  1. CIMZIA [Suspect]
     Active Substance: CERTOLIZUMAB PEGOL
     Indication: Rheumatoid arthritis
     Dosage: 400 MILLIGRAM, EV 4 WEEKS
     Route: 058
     Dates: start: 20200923
  2. CIMZIA [Suspect]
     Active Substance: CERTOLIZUMAB PEGOL
     Dosage: 400 MILLIGRAM; OTHER FREQUENCY
     Route: 058

REACTIONS (6)
  - Nephrolithiasis [Unknown]
  - Infection [Unknown]
  - Haematuria [Unknown]
  - Penis disorder [Unknown]
  - Rash [Unknown]
  - Dysuria [Unknown]

NARRATIVE: CASE EVENT DATE: 20220704
